FAERS Safety Report 19126244 (Version 1)
Quarter: 2021Q2

REPORT INFORMATION
  Report Type: Spontaneous
  Country: US (occurrence: US)
  Receive Date: 20210412
  Receipt Date: 20210412
  Transmission Date: 20210717
  Serious: Yes (Other)
  Sender: FDA-Public Use
  Company Number: None

PATIENT
  Sex: Female

DRUGS (12)
  1. TOLTERODINE [Concomitant]
     Active Substance: TOLTERODINE
  2. DULOXETINE. [Concomitant]
     Active Substance: DULOXETINE
  3. ONDANSETRON [Concomitant]
     Active Substance: ONDANSETRON
  4. AMITRIPTYLIN [Concomitant]
     Active Substance: AMITRIPTYLINE
  5. DIAZEPAM. [Concomitant]
     Active Substance: DIAZEPAM
  6. DICLOFENAC [Concomitant]
     Active Substance: DICLOFENAC
  7. TIZANIDINE. [Concomitant]
     Active Substance: TIZANIDINE
  8. LEVOTHYROXIN [Concomitant]
     Active Substance: LEVOTHYROXINE
  9. PLEGRIDY [Suspect]
     Active Substance: PEGINTERFERON BETA-1A
     Indication: MULTIPLE SCLEROSIS
     Route: 058
     Dates: start: 20190614
  10. GABAPENTIN. [Concomitant]
     Active Substance: GABAPENTIN
  11. CYANOCOBALAM [Concomitant]
     Active Substance: CYANOCOBALAMIN
  12. AMLODIPINE [Concomitant]
     Active Substance: AMLODIPINE BESYLATE

REACTIONS (2)
  - Knee operation [None]
  - Therapy interrupted [None]
